FAERS Safety Report 5022825-4 (Version None)
Quarter: 2006Q2

REPORT INFORMATION
  Report Type: 
  Country: None (occurrence: None)
  Receive Date: 20060426
  Receipt Date: 20060228
  Transmission Date: 20061013
  Serious: Yes (Other)
  Sender: FDA-Public Use
  Company Number: 2006030794

PATIENT
  Sex: Male

DRUGS (3)
  1. LYRICA [Suspect]
     Indication: ILL-DEFINED DISORDER
  2. VICODIN [Concomitant]
  3. ACIPHEX [Concomitant]

REACTIONS (1)
  - DRUG SCREEN POSITIVE [None]
